FAERS Safety Report 11897207 (Version 1)
Quarter: 2016Q1

REPORT INFORMATION
  Report Type: Spontaneous
  Country: US (occurrence: US)
  Receive Date: 20160108
  Receipt Date: 20160108
  Transmission Date: 20160526
  Serious: No
  Sender: FDA-Public Use
  Company Number: US-ELI_LILLY_AND_COMPANY-US201512008542

PATIENT
  Sex: Female

DRUGS (4)
  1. FORTEO [Suspect]
     Active Substance: TERIPARATIDE
     Indication: FRACTURE
     Dosage: UNK
     Dates: start: 20140624
  2. ESTRACE [Concomitant]
     Active Substance: ESTRADIOL
     Dosage: 1 MG, UNK
  3. CALCIUM [Concomitant]
     Active Substance: CALCIUM
  4. BONIVA [Concomitant]
     Active Substance: IBANDRONATE SODIUM
     Dosage: UNK
     Dates: start: 2010

REACTIONS (2)
  - Off label use [Unknown]
  - Alopecia [Unknown]
